FAERS Safety Report 9563551 (Version 1)
Quarter: 2013Q3

REPORT INFORMATION
  Report Type: Spontaneous
  Country: GB (occurrence: None)
  Receive Date: 20130926
  Receipt Date: 20130926
  Transmission Date: 20140515
  Serious: Yes (Hospitalization, Other)
  Sender: FDA-Public Use
  Company Number: AUR-APL-2013-07803

PATIENT
  Age: 89 Year
  Sex: Male

DRUGS (7)
  1. CEFALEXIN [Suspect]
     Indication: LOWER RESPIRATORY TRACT INFECTION
     Route: 048
     Dates: start: 20110604, end: 20110611
  2. LAXIDO (ELECTROLYTES NOS W/MACROGOL 3350) [Concomitant]
  3. PARACETAMOL (PRACETAMOL) [Concomitant]
  4. SEREVENT (SALMETEROL XINAFOATE) [Concomitant]
  5. TEMAZEPAM (TEMAZEPAM) [Concomitant]
  6. TIOTROPIUM (TIOTROPIUM) [Concomitant]
  7. ZOMOROPH (MORPHINE SULFATE) [Concomitant]

REACTIONS (4)
  - Chills [None]
  - Cough [None]
  - Hyperhidrosis [None]
  - Treatment failure [None]
